FAERS Safety Report 7738756-2 (Version None)
Quarter: 2011Q3

REPORT INFORMATION
  Report Type: 
  Country: None (occurrence: None)
  Receive Date: 20110908
  Receipt Date: 20110826
  Transmission Date: 20111222
  Serious: Yes (Hospitalization)
  Sender: FDA-Public Use
  Company Number: DE-RB-019424-10

PATIENT
  Sex: Female

DRUGS (1)
  1. SUBOXONE [Suspect]
     Indication: DRUG DEPENDENCE
     Dosage: DOSING DETAILS UNKNOWN.
     Route: 060

REACTIONS (3)
  - CHOLECYSTITIS [None]
  - ABDOMINAL PAIN [None]
  - CHOLELITHIASIS [None]
